FAERS Safety Report 15267908 (Version 1)
Quarter: 2018Q3

REPORT INFORMATION
  Report Type: Spontaneous
  Country: US (occurrence: US)
  Receive Date: 20180724
  Receipt Date: 20180724
  Transmission Date: 20181010
  Serious: Yes (Hospitalization)
  Sender: FDA-Public Use
  Company Number: None

PATIENT
  Age: 56 Year
  Sex: Male

DRUGS (14)
  1. LEVOFLOXACIN. [Concomitant]
     Active Substance: LEVOFLOXACIN
  2. LORAZEPAM. [Concomitant]
     Active Substance: LORAZEPAM
  3. HYDROCO/APAP [Concomitant]
     Active Substance: ACETAMINOPHEN\HYDROCODONE
  4. MELOXICAM. [Concomitant]
     Active Substance: MELOXICAM
  5. APAP/CODEINE [Concomitant]
     Active Substance: ACETAMINOPHEN\CODEINE PHOSPHATE
  6. ALLOPURINOL. [Concomitant]
     Active Substance: ALLOPURINOL
  7. TRAMADOL. [Concomitant]
     Active Substance: TRAMADOL
  8. INDOMETHACIN. [Concomitant]
     Active Substance: INDOMETHACIN
  9. METHYLPRED [Concomitant]
     Active Substance: METHYLPREDNISOLONE
  10. SPRYCEL [Suspect]
     Active Substance: DASATINIB
     Indication: ACUTE LYMPHOCYTIC LEUKAEMIA
  11. ACYCLOVIR. [Concomitant]
     Active Substance: ACYCLOVIR
  12. CEFDINIR. [Concomitant]
     Active Substance: CEFDINIR
  13. COLCHICINE. [Concomitant]
     Active Substance: COLCHICINE
  14. FLUCONAZOLE. [Concomitant]
     Active Substance: FLUCONAZOLE

REACTIONS (1)
  - Pyrexia [None]

NARRATIVE: CASE EVENT DATE: 20180724
